FAERS Safety Report 10871313 (Version 1)
Quarter: 2015Q1

REPORT INFORMATION
  Report Type: Spontaneous
  Country: US (occurrence: US)
  Receive Date: 20150226
  Receipt Date: 20150226
  Transmission Date: 20150721
  Serious: No
  Sender: FDA-Public Use
  Company Number: US-GLAXOSMITHKLINE-US2015009370

PATIENT
  Age: 51 Year
  Sex: Male

DRUGS (5)
  1. ADVAIR DISKUS [Suspect]
     Active Substance: FLUTICASONE PROPIONATE\SALMETEROL XINAFOATE
     Indication: CHRONIC OBSTRUCTIVE PULMONARY DISEASE
     Dosage: 500/50
     Route: 055
     Dates: start: 2012
  2. SINGULAIR [Concomitant]
     Active Substance: MONTELUKAST SODIUM
  3. VENTOLIN HFA [Suspect]
     Active Substance: ALBUTEROL SULFATE
     Indication: CHRONIC OBSTRUCTIVE PULMONARY DISEASE
     Dosage: 2 PUFF(S), BID
     Route: 055
     Dates: start: 2012
  4. VENTOLIN HFA [Suspect]
     Active Substance: ALBUTEROL SULFATE
     Dosage: 3 PUFF(S), BID
     Route: 055
     Dates: start: 2012
  5. LIPITOR [Concomitant]
     Active Substance: ATORVASTATIN CALCIUM

REACTIONS (9)
  - Gout [Not Recovered/Not Resolved]
  - Chest pain [Unknown]
  - Sleep apnoea syndrome [Not Recovered/Not Resolved]
  - Ill-defined disorder [Not Recovered/Not Resolved]
  - Drug administration error [Unknown]
  - Joint swelling [Not Recovered/Not Resolved]
  - Chest discomfort [Recovered/Resolved]
  - Gait disturbance [Not Recovered/Not Resolved]
  - Adverse event [Unknown]

NARRATIVE: CASE EVENT DATE: 20150110
